FAERS Safety Report 8015322-5 (Version None)
Quarter: 2011Q4

REPORT INFORMATION
  Report Type: 
  Country: None (occurrence: None)
  Receive Date: 20111230
  Receipt Date: 20111219
  Transmission Date: 20120403
  Serious: Yes (Other)
  Sender: FDA-Public Use
  Company Number: US-PERRIGO-11US011195

PATIENT
  Weight: 90.703 kg

DRUGS (1)
  1. IBUPROFEN AND DIPHENHYDRAMINE [Suspect]
     Indication: INTENTIONAL OVERDOSE
     Dosage: 15 TO 20 TABLETS, SINGLE
     Route: 048
     Dates: start: 20111201, end: 20111201

REACTIONS (1)
  - INTENTIONAL OVERDOSE [None]
